FAERS Safety Report 23111864 (Version 1)
Quarter: 2023Q4

REPORT INFORMATION
  Report Type: Report from Study
  Country: CN (occurrence: CN)
  Receive Date: 20231026
  Receipt Date: 20231026
  Transmission Date: 20240110
  Serious: Yes (Hospitalization)
  Sender: FDA-Public Use
  Company Number: CN-PFIZER INC-PV202300174691

PATIENT
  Age: 62 Year
  Sex: Male
  Weight: 77 kg

DRUGS (13)
  1. PACLITAXEL [Suspect]
     Active Substance: PACLITAXEL
     Indication: Non-small cell lung cancer metastatic
     Dosage: 200 MG/M2, EVERY 3 WEEKS (Q3W)
     Route: 042
     Dates: start: 20180712, end: 20180712
  2. CARBOPLATIN [Suspect]
     Active Substance: CARBOPLATIN
     Indication: Non-small cell lung cancer metastatic
     Dosage: AREA UNDER CURVE (AUC) 6, EVERY 3 WEEKS (Q3W), SOLUTION FOR INJECTION
     Route: 042
     Dates: start: 20180712, end: 20180712
  3. INVESTIGATIONAL PRODUCT [Suspect]
     Active Substance: INVESTIGATIONAL PRODUCT
     Indication: Non-small cell lung cancer metastatic
     Dosage: 200 MG, EVERY 3 WEEKS (Q3W), SOLUTION FOR INJECTION
     Route: 042
     Dates: start: 20180712, end: 20180712
  4. NIFEDIPINE [Concomitant]
     Active Substance: NIFEDIPINE
     Dosage: 1 DOSAGE FORM
     Dates: start: 200203
  5. TONG XIN LUO [Concomitant]
     Dosage: 3 DOSAGE FORM, TONG XIN LUO JIAO NANG
     Dates: start: 201805
  6. DEXAMETHASONE ACETATE [Concomitant]
     Active Substance: DEXAMETHASONE ACETATE
     Dosage: 19.5 MG
     Dates: start: 20180711, end: 20180712
  7. AZASETRON HYDROCHLORIDE [Concomitant]
     Active Substance: AZASETRON HYDROCHLORIDE
     Dosage: 10 MG
     Dates: start: 20180712, end: 20180712
  8. CIMETIDINE HYDROCHLORIDE [Concomitant]
     Active Substance: CIMETIDINE HYDROCHLORIDE
     Dosage: 0.4 G
     Dates: start: 20180712, end: 20180712
  9. DIPHENHYDRAMINE HYDROCHLORIDE [Concomitant]
     Active Substance: DIPHENHYDRAMINE HYDROCHLORIDE
     Dosage: 2 ML
     Dates: start: 20180712, end: 20180712
  10. DEXAMETHASONE SODIUM PHOSPHATE [Concomitant]
     Active Substance: DEXAMETHASONE SODIUM PHOSPHATE
     Dosage: 5 MG
     Dates: start: 20180712, end: 20180712
  11. APREPITANT [Concomitant]
     Active Substance: APREPITANT
     Dosage: 1 DOSAGE FORM
     Dates: start: 20180712, end: 20180712
  12. GRANULOCYTE COLONY-STIMULATING FACTOR NOS [Concomitant]
     Active Substance: GRANULOCYTE COLONY-STIMULATING FACTOR NOS
     Dosage: 1 DOSAGE FORM
     Dates: start: 20180724, end: 20180724
  13. METOPROLOL TARTRATE [Concomitant]
     Active Substance: METOPROLOL TARTRATE
     Dosage: 1 DOSAGE FORM
     Dates: start: 200203

REACTIONS (1)
  - Alanine aminotransferase increased [Recovered/Resolved]

NARRATIVE: CASE EVENT DATE: 20180726
